FAERS Safety Report 24084644 (Version 2)
Quarter: 2024Q3

REPORT INFORMATION
  Report Type: Spontaneous
  Country: US (occurrence: US)
  Receive Date: 20240712
  Receipt Date: 20240808
  Transmission Date: 20241017
  Serious: No
  Sender: PFIZER
  Company Number: US-PFIZER INC-PV202400071512

PATIENT
  Age: 51 Year
  Sex: Female

DRUGS (4)
  1. TUKYSA [Suspect]
     Active Substance: TUCATINIB
     Dosage: UNK
  2. TUKYSA [Suspect]
     Active Substance: TUCATINIB
     Dosage: 250 MG, 2X/DAY
  3. TUKYSA [Suspect]
     Active Substance: TUCATINIB
     Dosage: TUKYSA 150MG TAKE 1 TABLET TWICE A DAY
  4. TUKYSA [Suspect]
     Active Substance: TUCATINIB
     Dosage: TUKYSA 50MG TAKE 2 TABLETS TWICE A DAY

REACTIONS (1)
  - Urinary tract infection [Unknown]
